FAERS Safety Report 9448775 (Version 2)
Quarter: 2013Q3

REPORT INFORMATION
  Report Type: Spontaneous
  Country: JP (occurrence: JP)
  Receive Date: 20130808
  Receipt Date: 20130903
  Transmission Date: 20140515
  Serious: Yes (Hospitalization, Other)
  Sender: FDA-Public Use
  Company Number: JP-SANOFI-AVENTIS-2013SA071108

PATIENT
  Age: 52 Year
  Sex: Female
  Weight: 45 kg

DRUGS (18)
  1. ELPLAT [Suspect]
     Indication: RECTAL CANCER
     Route: 041
     Dates: start: 20130426, end: 20130426
  2. ELPLAT [Suspect]
     Indication: RECTAL CANCER
     Route: 041
     Dates: start: 20130517, end: 20130517
  3. ELPLAT [Suspect]
     Indication: RECTAL CANCER
     Route: 041
     Dates: start: 20130816, end: 20130816
  4. ELPLAT [Suspect]
     Indication: RECTAL CANCER
     Route: 041
     Dates: start: 20130726, end: 20130726
  5. ELPLAT [Suspect]
     Indication: RECTAL CANCER
     Route: 041
     Dates: start: 20130628, end: 20130628
  6. ELPLAT [Suspect]
     Indication: RECTAL CANCER
     Route: 041
     Dates: start: 20130607, end: 20130607
  7. XELODA [Suspect]
     Indication: RECTAL CANCER
     Route: 048
     Dates: start: 20130426, end: 20130510
  8. XELODA [Suspect]
     Indication: RECTAL CANCER
     Route: 048
     Dates: start: 20130816
  9. XELODA [Suspect]
     Indication: RECTAL CANCER
     Route: 048
     Dates: start: 20130726, end: 20130809
  10. XELODA [Suspect]
     Indication: RECTAL CANCER
     Route: 048
     Dates: start: 20130628, end: 20130706
  11. XELODA [Suspect]
     Indication: RECTAL CANCER
     Route: 048
     Dates: start: 20130607, end: 20130621
  12. XELODA [Suspect]
     Indication: RECTAL CANCER
     Route: 048
     Dates: start: 20130517, end: 20130531
  13. ALOXI [Concomitant]
     Dates: start: 20130426, end: 20130705
  14. DECADRON [Concomitant]
     Dates: start: 20130426, end: 20130705
  15. LEUCON [Concomitant]
     Dates: start: 20130426
  16. CINAL [Concomitant]
     Dosage: FORM: GRANULE
     Dates: start: 20130426
  17. PYDOXAL [Concomitant]
     Dates: start: 20130426
  18. GOSHAJINKIGAN [Concomitant]
     Dosage: FORM: GRANULE
     Dates: start: 20130426

REACTIONS (2)
  - Vascular pain [Recovered/Resolved]
  - Platelet count decreased [Recovered/Resolved]
